FAERS Safety Report 5299440-0 (Version None)
Quarter: 2007Q1

REPORT INFORMATION
  Report Type: 
  Country: None (occurrence: None)
  Receive Date: 20070201
  Receipt Date: 20061031
  Transmission Date: 20070707
  Serious: No
  Sender: FDA-Public Use
  Company Number: 2006PV024270

PATIENT
  Age: 58 Year
  Sex: Male

DRUGS (2)
  1. BYETTA [Suspect]
     Indication: DIABETES MELLITUS NON-INSULIN-DEPENDENT
     Dosage: SEE IMAGE
     Route: 058
     Dates: start: 20060701, end: 20060928
  2. BYETTA [Suspect]
     Indication: DIABETES MELLITUS NON-INSULIN-DEPENDENT
     Dosage: SEE IMAGE
     Route: 058
     Dates: start: 20060929

REACTIONS (7)
  - ABDOMINAL PAIN [None]
  - COLONIC POLYP [None]
  - DIVERTICULITIS [None]
  - DIZZINESS [None]
  - FAECES HARD [None]
  - GASTROINTESTINAL MOTILITY DISORDER [None]
  - NAUSEA [None]
